FAERS Safety Report 6741638-6 (Version None)
Quarter: 2010Q2

REPORT INFORMATION
  Report Type: 
  Country: None (occurrence: None)
  Receive Date: 20100524
  Receipt Date: 20100514
  Transmission Date: 20101027
  Serious: Yes (Death, Other)
  Sender: FDA-Public Use
  Company Number: LEO-2010-00329

PATIENT
  Age: 70 Year
  Sex: Male

DRUGS (3)
  1. INNOHEP [Suspect]
     Indication: DRUG USE FOR UNKNOWN INDICATION
     Dosage: (4500 IU)
     Dates: start: 20100209, end: 20100212
  2. REFLUDAN [Suspect]
     Indication: DRUG USE FOR UNKNOWN INDICATION
     Dosage: FOR 3 DAYS AFTER HEPARIN SODIUM STOPPED
  3. HEPARIN [Concomitant]

REACTIONS (2)
  - HEPARIN-INDUCED THROMBOCYTOPENIA [None]
  - SUBDURAL HAEMORRHAGE [None]
